FAERS Safety Report 23369842 (Version 1)
Quarter: 2024Q1

REPORT INFORMATION
  Report Type: Spontaneous
  Country: CN (occurrence: CN)
  Receive Date: 20240105
  Receipt Date: 20240105
  Transmission Date: 20240410
  Serious: Yes (Disabling, Other)
  Sender: FDA-Public Use
  Company Number: CN-JNJFOC-20231277022

PATIENT
  Age: 74 Year
  Sex: Male
  Weight: 68.2 kg

DRUGS (4)
  1. DARZALEX [Suspect]
     Active Substance: DARATUMUMAB
     Indication: Plasma cell myeloma
     Dosage: 0.9% NS100ML STAT ORDER THREE TIMES IVGTT
     Route: 042
     Dates: start: 20231214, end: 20231214
  2. DARZALEX [Suspect]
     Active Substance: DARATUMUMAB
     Dosage: 0.9% NS500ML STAT ORDER TWICE IVGTT,
     Route: 042
     Dates: start: 20231214, end: 20231214
  3. BORTEZOMIB [Suspect]
     Active Substance: BORTEZOMIB
     Indication: Plasma cell myeloma
     Dosage: STAT ORDER IH (MEDICATION TIME: FROM 14-DEC-2023TO 17-DEC-2023?USAGE: ONCE IN THREE DAYS
     Route: 058
     Dates: start: 20231214, end: 20231217
  4. LENALIDOMIDE [Suspect]
     Active Substance: LENALIDOMIDE
     Indication: Plasma cell myeloma
     Dosage: (MEDICATION TIME: FROM 14-DEC -2023TO 19-DEC-2023)
     Route: 048
     Dates: start: 20231214, end: 20231219

REACTIONS (3)
  - White blood cell count decreased [Recovering/Resolving]
  - Granulocyte count decreased [Recovering/Resolving]
  - Platelet count decreased [Recovering/Resolving]

NARRATIVE: CASE EVENT DATE: 20231217
